FAERS Safety Report 8574342-2 (Version None)
Quarter: 2012Q3

REPORT INFORMATION
  Report Type: 
  Country: None (occurrence: None)
  Receive Date: 20120806
  Receipt Date: 20120727
  Transmission Date: 20120928
  Serious: No
  Sender: FDA-Public Use
  Company Number: US-009507513-1207USA012089

PATIENT

DRUGS (6)
  1. LIPITOR [Concomitant]
     Dosage: 10 MG, UNK
  2. NASONEX [Suspect]
     Dosage: 1 DF, PUF
     Route: 045
  3. NASONEX [Suspect]
     Dosage: 4 DF, PUF
     Route: 045
  4. ALLOPURINOL [Concomitant]
  5. SPIRIVA [Suspect]
     Route: 055
  6. FLUTICASONE PROPIONATE [Suspect]
     Route: 055

REACTIONS (5)
  - INSOMNIA [None]
  - FEELING ABNORMAL [None]
  - THROAT IRRITATION [None]
  - DYSPNOEA [None]
  - COUGH [None]
